FAERS Safety Report 8973482 (Version 1)
Quarter: 2012Q4

REPORT INFORMATION
  Report Type: 
  Country: US (occurrence: US)
  Receive Date: 20121218
  Receipt Date: 20121218
  Transmission Date: 20130627
  Serious: No
  Sender: FDA-Public Use
  Company Number: US-BRISTOL-MYERS SQUIBB COMPANY-16824203

PATIENT
  Age: 57 Year
  Sex: Female

DRUGS (1)
  1. ABILIFY [Suspect]
     Indication: PANIC ATTACK
     Dosage: Abilify 5mg 
1DF: Cuts into half

REACTIONS (2)
  - Diarrhoea [Unknown]
  - Wrong technique in drug usage process [Unknown]
